FAERS Safety Report 15318092 (Version 3)
Quarter: 2019Q1

REPORT INFORMATION
  Report Type: Report from Study
  Country: None (occurrence: US)
  Receive Date: 20180825
  Receipt Date: 20190123
  Transmission Date: 20190417
  Serious: Yes (Other)
  Sender: FDA-Public Use
  Company Number: US-ABBVIE-18K-163-2463417-00

PATIENT
  Age: 76 Year
  Sex: Male

DRUGS (1)
  1. HUMIRA [Suspect]
     Active Substance: ADALIMUMAB
     Indication: CROHN^S DISEASE
     Route: 058
     Dates: start: 20170807, end: 20180802

REACTIONS (2)
  - Heart valve incompetence [Not Recovered/Not Resolved]
  - Cardiac valve replacement complication [Recovered/Resolved]

NARRATIVE: CASE EVENT DATE: 201809
